FAERS Safety Report 5573446-6 (Version None)
Quarter: 2007Q4

REPORT INFORMATION
  Report Type: 
  Country: None (occurrence: None)
  Receive Date: 20071226
  Receipt Date: 20071219
  Transmission Date: 20080405
  Serious: Yes (Hospitalization, Other)
  Sender: FDA-Public Use
  Company Number: CA-BAYER-200716395GDS

PATIENT
  Age: 51 Year
  Sex: Female

DRUGS (2)
  1. ALEVE [Suspect]
     Indication: DRUG USE FOR UNKNOWN INDICATION
     Dosage: AS USED: 440 MG  UNIT DOSE: 220 MG
     Route: 048
     Dates: start: 20071016
  2. GABAPENTIN [Concomitant]
     Indication: RESTLESS LEGS SYNDROME

REACTIONS (7)
  - DYSPNOEA [None]
  - EYE SWELLING [None]
  - GENERALISED ERYTHEMA [None]
  - HEADACHE [None]
  - HYPERSENSITIVITY [None]
  - PHARYNGEAL OEDEMA [None]
  - SWOLLEN TONGUE [None]
